FAERS Safety Report 5133794-0 (Version None)
Quarter: 2006Q4

REPORT INFORMATION
  Report Type: 
  Country: None (occurrence: None)
  Receive Date: 20061018
  Receipt Date: 20061011
  Transmission Date: 20070319
  Serious: Yes (Other)
  Sender: FDA-Public Use
  Company Number: 148597USA

PATIENT
  Age: 1 Year
  Sex: Male

DRUGS (1)
  1. CARBOPLATIN [Suspect]
     Dosage: (20 MG)

REACTIONS (9)
  - DISORDER OF ORBIT [None]
  - DRUG TOXICITY [None]
  - EYE EXCISION [None]
  - GLIOSIS [None]
  - ILL-DEFINED DISORDER [None]
  - NECROSIS ISCHAEMIC [None]
  - NEOPLASM PROGRESSION [None]
  - OPTIC ATROPHY [None]
  - OPTIC NERVE DISORDER [None]
